FAERS Safety Report 5875060-1 (Version None)
Quarter: 2008Q3

REPORT INFORMATION
  Report Type: 
  Country: None (occurrence: None)
  Receive Date: 20080908
  Receipt Date: 20080908
  Transmission Date: 20090109
  Serious: Yes (Disabling)
  Sender: FDA-Public Use
  Company Number: None

PATIENT
  Age: 75 Year
  Sex: Female
  Weight: 72.5755 kg

DRUGS (2)
  1. LEVAQUIN [Suspect]
     Indication: URINARY TRACT INFECTION
     Dosage: ONE DAILY ORAL
     Route: 048
     Dates: start: 20080601, end: 20080603
  2. PREDNISONE [Suspect]
     Indication: ARTHRITIS
     Dosage: ONE DAILY ORAL
     Route: 048
     Dates: start: 20080601, end: 20080603

REACTIONS (6)
  - ADVERSE DRUG REACTION [None]
  - GAIT DISTURBANCE [None]
  - MUSCLE DISORDER [None]
  - MUSCLE STRAIN [None]
  - MYALGIA [None]
  - TENDON INJURY [None]
